FAERS Safety Report 4429029-4 (Version None)
Quarter: 2004Q3

REPORT INFORMATION
  Report Type: 
  Country: None (occurrence: None)
  Receive Date: 20040726
  Receipt Date: 20040308
  Transmission Date: 20050211
  Serious: No
  Sender: FDA-Public Use
  Company Number: USA040361284

PATIENT
  Age: 23 Year
  Sex: Female

DRUGS (4)
  1. FORTEO [Suspect]
     Indication: OSTEOPOROSIS
     Dates: start: 20040305
  2. VIOXX [Concomitant]
  3. DAILY VITAMINS [Concomitant]
  4. CALCIUM WITH VITAMIN D [Concomitant]

REACTIONS (2)
  - FATIGUE [None]
  - MUSCULOSKELETAL STIFFNESS [None]
